FAERS Safety Report 5373021-2 (Version None)
Quarter: 2007Q2

REPORT INFORMATION
  Report Type: 
  Country: None (occurrence: None)
  Receive Date: 20070619
  Receipt Date: 20070330
  Transmission Date: 20071010
  Serious: No
  Sender: FDA-Public Use
  Company Number: 2007US000779

PATIENT
  Age: 50 Year
  Sex: Female

DRUGS (2)
  1. VESICARE [Suspect]
     Indication: DRUG USE FOR UNKNOWN INDICATION
     Dosage: ORAL
     Route: 048
  2. PROZAC [Concomitant]

REACTIONS (2)
  - BLEPHAROSPASM [None]
  - PARAESTHESIA ORAL [None]
